FAERS Safety Report 13298356 (Version 1)
Quarter: 2017Q1

REPORT INFORMATION
  Report Type: Spontaneous
  Country: US (occurrence: US)
  Receive Date: 20170306
  Receipt Date: 20170306
  Transmission Date: 20170428
  Serious: Yes (Other)
  Sender: FDA-Public Use
  Company Number: None

PATIENT
  Age: 65 Year
  Sex: Male
  Weight: 71.73 kg

DRUGS (6)
  1. METHYLPREDNISOLONE TABLETS, USP 4 MG [Suspect]
     Active Substance: METHYLPREDNISOLONE
     Indication: SINUS DISORDER
     Dosage: 4 MG 1 PILL AT A TIME TOTAL 21 BRK LUN DIN 3
     Route: 048
     Dates: start: 20170213, end: 20170214
  2. METHYLPREDNISOLONE TABLETS, USP 4 MG [Suspect]
     Active Substance: METHYLPREDNISOLONE
     Indication: COUGH
     Dosage: 4 MG 1 PILL AT A TIME TOTAL 21 BRK LUN DIN 3
     Route: 048
     Dates: start: 20170213, end: 20170214
  3. FOLIC ACID. [Concomitant]
     Active Substance: FOLIC ACID
  4. LISINOPRIL-HCTZ [Concomitant]
     Active Substance: HYDROCHLOROTHIAZIDE\LISINOPRIL
  5. ONE A DAY VITAMINS [Concomitant]
  6. VITAMIN B12 [Concomitant]
     Active Substance: CYANOCOBALAMIN

REACTIONS (2)
  - Myalgia [None]
  - Hiccups [None]

NARRATIVE: CASE EVENT DATE: 20170214
